FAERS Safety Report 5624977-1 (Version None)
Quarter: 2008Q1

REPORT INFORMATION
  Report Type: 
  Country: None (occurrence: None)
  Receive Date: 20080213
  Receipt Date: 20080201
  Transmission Date: 20080703
  Serious: Yes (Other)
  Sender: FDA-Public Use
  Company Number: BR-PFIZER INC-2008011101

PATIENT
  Sex: Female

DRUGS (4)
  1. TOLTERODINE TARTRATE [Suspect]
     Indication: HYPERTONIC BLADDER
     Route: 048
  2. SOMALGIN [Concomitant]
     Route: 048
  3. ATENOLOL AND CHLORTHALIDONE [Concomitant]
     Route: 048
     Dates: start: 20060101
  4. MODURETIC 5-50 [Concomitant]
     Route: 048
     Dates: start: 19980101

REACTIONS (1)
  - BLADDER OBSTRUCTION [None]
